FAERS Safety Report 4585294-4 (Version None)
Quarter: 2005Q1

REPORT INFORMATION
  Report Type: 
  Country: None (occurrence: None)
  Receive Date: 20050214
  Receipt Date: 20050202
  Transmission Date: 20050727
  Serious: Yes (Other)
  Sender: FDA-Public Use
  Company Number: 2004116257

PATIENT
  Sex: Female
  Weight: 74.8435 kg

DRUGS (1)
  1. DETROL LA [Suspect]
     Indication: INCONTINENCE
     Dosage: 16 MG (4 MG), ORAL
     Route: 048
     Dates: start: 20020101

REACTIONS (6)
  - DRY MOUTH [None]
  - FOOT FRACTURE [None]
  - FRACTURE MALUNION [None]
  - JOINT SPRAIN [None]
  - OSTEOPOROSIS [None]
  - THERAPEUTIC RESPONSE DECREASED [None]
